FAERS Safety Report 5268016-3 (Version None)
Quarter: 2007Q1

REPORT INFORMATION
  Report Type: 
  Country: None (occurrence: None)
  Receive Date: 20061213
  Receipt Date: 20040723
  Transmission Date: 20070707
  Serious: Yes (Other)
  Sender: FDA-Public Use
  Company Number: 2004UW15639

PATIENT
  Age: 70 Year
  Sex: Female
  Weight: 47.6277 kg

DRUGS (2)
  1. IRESSA [Suspect]
     Indication: LUNG NEOPLASM MALIGNANT
     Dosage: 250 MG QD GE
     Dates: start: 20040601
  2. ZANTAC [Concomitant]

REACTIONS (1)
  - CHEST PAIN [None]
